FAERS Safety Report 12833654 (Version 4)
Quarter: 2017Q1

REPORT INFORMATION
  Report Type: Spontaneous
  Country: GB (occurrence: GB)
  Receive Date: 20161010
  Receipt Date: 20170221
  Transmission Date: 20170428
  Serious: Yes (Death, Other)
  Sender: FDA-Public Use
  Company Number: GB-SA-2016SA184172

PATIENT
  Age: 18 Year
  Sex: Female

DRUGS (12)
  1. CYCLOSPORINE. [Suspect]
     Active Substance: CYCLOSPORINE
     Indication: POLYARTHRITIS
     Route: 065
  2. CYCLOSPORINE. [Suspect]
     Active Substance: CYCLOSPORINE
     Indication: PROPHYLAXIS
     Route: 065
  3. PREDNISOLONE. [Suspect]
     Active Substance: PREDNISOLONE
     Indication: PROPHYLAXIS
     Route: 065
  4. CYCLOPHOSPHAMIDE. [Suspect]
     Active Substance: CYCLOPHOSPHAMIDE
     Indication: POLYARTHRITIS
     Route: 065
  5. ANAKINRA [Suspect]
     Active Substance: ANAKINRA
     Indication: POLYARTHRITIS
     Route: 065
  6. FLUDARABINE PHOSPHATE. [Suspect]
     Active Substance: FLUDARABINE PHOSPHATE
     Indication: POLYARTHRITIS
     Route: 065
  7. METHOTREXATE. [Suspect]
     Active Substance: METHOTREXATE
     Indication: POLYARTHRITIS
     Route: 065
  8. LEFLUNOMIDE. [Suspect]
     Active Substance: LEFLUNOMIDE
     Indication: POLYARTHRITIS
     Route: 065
  9. INFLIXIMAB [Suspect]
     Active Substance: INFLIXIMAB
     Indication: POLYARTHRITIS
     Route: 065
  10. RABBIT HUMAN T LYMPHOCYTE IMMUNOGLOBULIN [Suspect]
     Active Substance: LAPINE T-LYMPHOCYTE IMMUNE GLOBULIN
     Indication: POLYARTHRITIS
     Route: 065
  11. ANAKINRA [Suspect]
     Active Substance: ANAKINRA
     Indication: PROPHYLAXIS
     Route: 065
  12. ETANERCEPT [Suspect]
     Active Substance: ETANERCEPT
     Indication: POLYARTHRITIS
     Route: 065

REACTIONS (7)
  - Multiple organ dysfunction syndrome [Fatal]
  - Epstein-Barr virus infection [Fatal]
  - Bone marrow failure [Fatal]
  - Aspergillus infection [Fatal]
  - Drug ineffective [Unknown]
  - Adenovirus infection [Fatal]
  - Bacterial sepsis [Fatal]
